FAERS Safety Report 9459827 (Version 2)
Quarter: 2013Q3

REPORT INFORMATION
  Report Type: Spontaneous
  Country: US (occurrence: US)
  Receive Date: 20130815
  Receipt Date: 20130903
  Transmission Date: 20140515
  Serious: Yes (Death)
  Sender: FDA-Public Use
  Company Number: US-PFIZER INC-2013233668

PATIENT
  Age: 50 Year
  Sex: Female

DRUGS (1)
  1. SUTENT [Suspect]
     Indication: CARCINOID TUMOUR
     Dosage: 50 MG, DAILY FOR FOUR WEEKS
     Route: 048
     Dates: start: 20130626, end: 201307

REACTIONS (1)
  - Death [Fatal]
